FAERS Safety Report 23278477 (Version 11)
Quarter: 2024Q4

REPORT INFORMATION
  Report Type: Spontaneous
  Country: US (occurrence: US)
  Receive Date: 20231208
  Receipt Date: 20241115
  Transmission Date: 20250115
  Serious: Yes (Other)
  Sender: BRISTOL-MYERS SQUIBB COMPANY
  Company Number: US-BRISTOL-MYERS SQUIBB COMPANY-2023-173840

PATIENT
  Age: 76 Year
  Sex: Female
  Weight: 51.26 kg

DRUGS (7)
  1. LENALIDOMIDE [Suspect]
     Active Substance: LENALIDOMIDE
     Indication: Plasma cell myeloma
     Dosage: TAKE 1 CAPSULE WHOLE BY MOUTH WITH WATER AT THE SAME TIME EVERY DAY ON DAYS 1-21 OF EACH 28 DAY CYCL
     Route: 048
     Dates: start: 20231005
  2. LENALIDOMIDE [Suspect]
     Active Substance: LENALIDOMIDE
     Dosage: TAKE 1 CAPSULE BY MOUTH EVERY DAY FOR 21 DAYS THEN OFF FOR 1 WEEK, REPEAT
     Route: 048
     Dates: start: 20231028
  3. LENALIDOMIDE [Suspect]
     Active Substance: LENALIDOMIDE
     Dosage: TAKE 1 CAPSULE BY MOUTH EVERY OTHER DAY
     Route: 048
  4. LENALIDOMIDE [Suspect]
     Active Substance: LENALIDOMIDE
     Dosage: TAKE 1 CAPSULE (10MG) BY MOUTH EVERY OTHER DAY ON A 28 DAY CYCLE
     Route: 048
  5. LENALIDOMIDE [Suspect]
     Active Substance: LENALIDOMIDE
     Dosage: TAKE 1 CAPSULE (10MG) BY MOUTH EVERY OTHER DAY ON A 28 DAY CYCLE
     Route: 048
  6. VELCADE [Suspect]
     Active Substance: BORTEZOMIB
     Indication: Product used for unknown indication
  7. SIMVASTATIN [Interacting]
     Active Substance: SIMVASTATIN
     Indication: Product used for unknown indication

REACTIONS (34)
  - Blood calcium decreased [Not Recovered/Not Resolved]
  - Drug interaction [Recovered/Resolved]
  - Loss of consciousness [Unknown]
  - Constipation [Not Recovered/Not Resolved]
  - Eating disorder [Not Recovered/Not Resolved]
  - Dysgeusia [Not Recovered/Not Resolved]
  - Weight decreased [Not Recovered/Not Resolved]
  - Nausea [Not Recovered/Not Resolved]
  - Fatigue [Not Recovered/Not Resolved]
  - Anaemia [Not Recovered/Not Resolved]
  - Diarrhoea [Not Recovered/Not Resolved]
  - Tremor [Not Recovered/Not Resolved]
  - Decreased appetite [Not Recovered/Not Resolved]
  - Dyspnoea [Unknown]
  - Nasopharyngitis [Not Recovered/Not Resolved]
  - Arthritis [Unknown]
  - Memory impairment [Unknown]
  - Confusional state [Unknown]
  - Disorientation [Unknown]
  - Dehydration [Not Recovered/Not Resolved]
  - Renal disorder [Not Recovered/Not Resolved]
  - Body height decreased [Unknown]
  - Anxiety [Unknown]
  - Frustration tolerance decreased [Unknown]
  - Swelling [Not Recovered/Not Resolved]
  - Blood potassium decreased [Not Recovered/Not Resolved]
  - Neuropathy peripheral [Recovering/Resolving]
  - Oedema peripheral [Not Recovered/Not Resolved]
  - Off label use [Unknown]
  - Sinus disorder [Unknown]
  - Hypersensitivity [Unknown]
  - Dizziness [Unknown]
  - Blood pressure abnormal [Not Recovered/Not Resolved]
  - Depression [Not Recovered/Not Resolved]

NARRATIVE: CASE EVENT DATE: 20240401
